FAERS Safety Report 5672560-4 (Version None)
Quarter: 2008Q1

REPORT INFORMATION
  Report Type: 
  Country: None (occurrence: None)
  Receive Date: 20080318
  Receipt Date: 20080318
  Transmission Date: 20080703
  Serious: Yes (Other)
  Sender: FDA-Public Use
  Company Number: None

PATIENT
  Sex: Female
  Weight: 81.81 kg

DRUGS (1)
  1. RISPERIDONE [Suspect]

REACTIONS (2)
  - DELUSION [None]
  - DYSTONIA [None]
